FAERS Safety Report 4719415-7 (Version None)
Quarter: 2005Q3

REPORT INFORMATION
  Report Type: 
  Country: None (occurrence: None)
  Receive Date: 20050721
  Receipt Date: 20050124
  Transmission Date: 20060218
  Serious: No
  Sender: FDA-Public Use
  Company Number: US-BRISTOL-MYERS SQUIBB COMPANY-12835120

PATIENT
  Age: 50 Year
  Sex: Female
  Weight: 59 kg

DRUGS (4)
  1. ESTRACE [Suspect]
     Indication: MENOPAUSAL SYMPTOMS
     Route: 048
     Dates: start: 19980101
  2. LEVOTHYROXINE [Concomitant]
     Dates: start: 20000101
  3. LIOTHYRONINE SODIUM [Concomitant]
     Dates: start: 20000101
  4. DHEA [Concomitant]
     Dates: start: 20000101

REACTIONS (1)
  - DRUG INEFFECTIVE [None]
